FAERS Safety Report 6574832-8 (Version None)
Quarter: 2010Q1

REPORT INFORMATION
  Report Type: 
  Country: None (occurrence: None)
  Receive Date: 20100209
  Receipt Date: 20100118
  Transmission Date: 20100710
  Serious: Yes (Hospitalization, Other)
  Sender: FDA-Public Use
  Company Number: PHEH2009US14963

PATIENT
  Weight: 48.5 kg

DRUGS (1)
  1. FOCALIN XR [Suspect]
     Indication: ATTENTION DEFICIT/HYPERACTIVITY DISORDER
     Dosage: UNK
     Route: 048
     Dates: start: 20050630, end: 20091028

REACTIONS (4)
  - BONE DISORDER [None]
  - ROAD TRAFFIC ACCIDENT [None]
  - SURGERY [None]
  - VERTEBRAL WEDGING [None]
